FAERS Safety Report 7085594-2 (Version None)
Quarter: 2010Q4

REPORT INFORMATION
  Report Type: 
  Country: None (occurrence: None)
  Receive Date: 20101027
  Receipt Date: 20101013
  Transmission Date: 20110411
  Serious: Yes (Death, Other)
  Sender: FDA-Public Use
  Company Number: 018612

PATIENT
  Age: 73 Year
  Sex: Female
  Weight: 52 kg

DRUGS (4)
  1. LACOSAMIDE [Suspect]
     Indication: STATUS EPILEPTICUS
     Dosage: 200 MG BID INTRAVENOUS
     Route: 042
  2. KEPPRA [Suspect]
     Indication: STATUS EPILEPTICUS
     Dosage: 1500 MG BID
  3. PHENYTOIN [Suspect]
     Indication: STATUS EPILEPTICUS
     Dosage: 100 MG TID
  4. CEFEPIME [Concomitant]

REACTIONS (2)
  - ANGIOEDEMA [None]
  - HAEMORRHAGE INTRACRANIAL [None]
